FAERS Safety Report 15089831 (Version 1)
Quarter: 2018Q2

REPORT INFORMATION
  Report Type: Spontaneous
  Country: IT (occurrence: IT)
  Receive Date: 20180629
  Receipt Date: 20180629
  Transmission Date: 20180711
  Serious: Yes (Life-Threatening, Other)
  Sender: FDA-Public Use
  Company Number: IT-TEVA-2018-IT-916957

PATIENT
  Age: 74 Year
  Sex: Male

DRUGS (1)
  1. BENDAMUSTINE HYDROCHLORIDE. [Suspect]
     Active Substance: BENDAMUSTINE HYDROCHLORIDE
     Indication: B-CELL LYMPHOMA
     Dosage: ON DAY 1 AND 2
     Route: 042

REACTIONS (6)
  - Toxicity to various agents [Unknown]
  - Prescribed underdose [Unknown]
  - Megacolon [Unknown]
  - Gastrointestinal mucosal disorder [Unknown]
  - Colitis ischaemic [Unknown]
  - Intestinal pseudo-obstruction [Unknown]
